FAERS Safety Report 20836476 (Version 2)
Quarter: 2022Q2

REPORT INFORMATION
  Report Type: Spontaneous
  Country: FR (occurrence: FR)
  Receive Date: 20220517
  Receipt Date: 20220601
  Transmission Date: 20220720
  Serious: Yes (Hospitalization, Other)
  Sender: FDA-Public Use
  Company Number: FR-AFSSAPS-LL20212583

PATIENT
  Age: 67 Year
  Sex: Male

DRUGS (8)
  1. LIDOCAINE [Suspect]
     Active Substance: LIDOCAINE
     Indication: Trigeminal neuralgia
     Dosage: 5 MILLIGRAM/KILOGRAM
     Route: 042
     Dates: start: 20210317, end: 20210322
  2. CALCIPARINE [Suspect]
     Active Substance: HEPARIN CALCIUM
     Indication: Prophylaxis
     Dosage: UNK
     Route: 058
     Dates: start: 20210314
  3. RIVOTRIL [Suspect]
     Active Substance: CLONAZEPAM
     Indication: Trigeminal neuralgia
     Dosage: 9 DOSAGE FORM
     Route: 048
     Dates: start: 2015
  4. TEGRETOL [Suspect]
     Active Substance: CARBAMAZEPINE
     Indication: Trigeminal neuralgia
     Dosage: 300 MILLIGRAM
     Route: 048
  5. TEGRETOL [Suspect]
     Active Substance: CARBAMAZEPINE
     Dosage: 250 MILLIGRAM, ONCE A DAY
     Route: 048
     Dates: start: 2015, end: 202101
  6. TEGRETOL [Suspect]
     Active Substance: CARBAMAZEPINE
     Dosage: 400 MILLIGRAM, ONCE A DAY
     Route: 048
     Dates: start: 202101, end: 20210312
  7. TEGRETOL [Suspect]
     Active Substance: CARBAMAZEPINE
     Dosage: 600 MILLIGRAM, ONCE A DAY
     Route: 048
     Dates: start: 20210312, end: 20210314
  8. TRILEPTAL [Suspect]
     Active Substance: OXCARBAZEPINE
     Indication: Trigeminal neuralgia
     Dosage: 300 MILLIGRAM
     Route: 048
     Dates: start: 20210317

REACTIONS (2)
  - Hepatic cytolysis [Not Recovered/Not Resolved]
  - Product use in unapproved indication [Unknown]

NARRATIVE: CASE EVENT DATE: 20150101
